FAERS Safety Report 21297022 (Version 1)
Quarter: 2022Q3

REPORT INFORMATION
  Report Type: Spontaneous
  Country: US (occurrence: US)
  Receive Date: 20220906
  Receipt Date: 20220906
  Transmission Date: 20221026
  Serious: Yes (Hospitalization)
  Sender: FDA-Public Use
  Company Number: US-AVET LIFESCIENCES LTD-2022-AVET-000157

PATIENT
  Age: 30 Year
  Sex: Female

DRUGS (3)
  1. METHIMAZOLE [Suspect]
     Active Substance: METHIMAZOLE
     Indication: Basedow^s disease
     Dosage: 10 MILLIGRAM, DAILY
  2. METHIMAZOLE [Suspect]
     Active Substance: METHIMAZOLE
     Dosage: INCREASED TO 15 MG DAILY (0.21 MG/ KG DOSE) AFTER 1 MONTH DUE TO PERSISTENTLY ELEVATED FREE T3
  3. ATENOLOL [Concomitant]
     Active Substance: ATENOLOL
     Indication: Basedow^s disease
     Dosage: 25 MILLIGRAM, BID

REACTIONS (4)
  - Jaundice cholestatic [Recovered/Resolved]
  - Febrile neutropenia [Recovered/Resolved]
  - Pharyngitis [Recovered/Resolved]
  - Agranulocytosis [Recovered/Resolved]
